FAERS Safety Report 5009975-3 (Version None)
Quarter: 2006Q2

REPORT INFORMATION
  Report Type: 
  Country: None (occurrence: None)
  Receive Date: 20060522
  Receipt Date: 20060512
  Transmission Date: 20061013
  Serious: Yes (Other)
  Sender: FDA-Public Use
  Company Number: 200610582BNE

PATIENT
  Age: 13 Year
  Sex: Male
  Weight: 48.7 kg

DRUGS (2)
  1. CIPROFLOXACIN [Suspect]
     Indication: OSTEOMYELITIS
     Dosage: 500 MG, BID, ORAL
     Route: 048
     Dates: start: 20060314, end: 20060413
  2. FLUCLOXACILLIN [Concomitant]

REACTIONS (1)
  - PHOTOSENSITIVITY REACTION [None]
